FAERS Safety Report 24389006 (Version 3)
Quarter: 2025Q2

REPORT INFORMATION
  Report Type: Spontaneous
  Country: US (occurrence: US)
  Receive Date: 20241002
  Receipt Date: 20250515
  Transmission Date: 20250717
  Serious: No
  Sender: SANOFI AVENTIS
  Company Number: US-SA-2024SA278723

PATIENT
  Age: 32 Year
  Sex: Female

DRUGS (5)
  1. DUPIXENT [Suspect]
     Active Substance: DUPILUMAB
     Indication: Eczema
     Route: 058
     Dates: start: 20240913, end: 20240913
  2. DUPIXENT [Suspect]
     Active Substance: DUPILUMAB
     Indication: Dermatitis
     Dosage: 300 MG, QOW
     Route: 058
     Dates: start: 202409
  3. HYDROCORTISONE [Concomitant]
     Active Substance: HYDROCORTISONE
  4. EUCRISA [Concomitant]
     Active Substance: CRISABOROLE
  5. FLUOCINONIDE [Concomitant]
     Active Substance: FLUOCINONIDE

REACTIONS (4)
  - Dermatitis [Recovering/Resolving]
  - Oral herpes [Recovered/Resolved]
  - Product use in unapproved indication [Unknown]
  - Product dose omission in error [Unknown]

NARRATIVE: CASE EVENT DATE: 20240901
